FAERS Safety Report 10042937 (Version 2)
Quarter: 2014Q2

REPORT INFORMATION
  Report Type: Spontaneous
  Country: IT (occurrence: IT)
  Receive Date: 20140328
  Receipt Date: 20140405
  Transmission Date: 20141212
  Serious: Yes (Death)
  Sender: FDA-Public Use
  Company Number: 2014SP001604

PATIENT
  Age: 50 Year
  Sex: Male

DRUGS (2)
  1. DOXORUBICIN [Suspect]
     Indication: RENAL CANCER METASTATIC
     Dates: start: 20140109
  2. GEMCITABINE [Suspect]
     Indication: RENAL CANCER METASTATIC
     Dates: start: 20140109

REACTIONS (3)
  - Disease progression [Fatal]
  - Renal cancer metastatic [Fatal]
  - Off label use [Fatal]
